FAERS Safety Report 18380509 (Version 1)
Quarter: 2020Q4

REPORT INFORMATION
  Report Type: Spontaneous
  Country: US (occurrence: US)
  Receive Date: 20201013
  Receipt Date: 20201013
  Transmission Date: 20210114
  Serious: Yes (Hospitalization)
  Sender: FDA-Public Use
  Company Number: US-PIRAMAL ENTERPRISES LIMITED-2020-PEL-000583

PATIENT

DRUGS (1)
  1. GABLOFEN [Suspect]
     Active Substance: BACLOFEN
     Indication: PRODUCT USED FOR UNKNOWN INDICATION
     Dosage: 494 MICROGRAM PER DAY
     Route: 037

REACTIONS (2)
  - Incision site discharge [Unknown]
  - Post procedural infection [Unknown]
